FAERS Safety Report 19965700 (Version 1)
Quarter: 2021Q4

REPORT INFORMATION
  Report Type: Spontaneous
  Country: US (occurrence: US)
  Receive Date: 20211018
  Receipt Date: 20211018
  Transmission Date: 20220304
  Serious: Yes (Other)
  Sender: FDA-Public Use
  Company Number: US-PFIZER INC-2021387456

PATIENT
  Age: 49 Year
  Sex: Female

DRUGS (2)
  1. INLYTA [Suspect]
     Active Substance: AXITINIB
     Indication: Renal cell carcinoma
     Dosage: 2 MG, 2X/DAY
     Route: 048
     Dates: start: 20210112
  2. XGEVA [Suspect]
     Active Substance: DENOSUMAB
     Dosage: UNK

REACTIONS (11)
  - Musculoskeletal stiffness [Unknown]
  - Loss of personal independence in daily activities [Not Recovered/Not Resolved]
  - Aphonia [Unknown]
  - Back pain [Unknown]
  - Fatigue [Unknown]
  - Illness [Unknown]
  - Pain [Unknown]
  - Inflammation [Unknown]
  - Joint range of motion decreased [Unknown]
  - Constipation [Unknown]
  - Cough [Not Recovered/Not Resolved]
